FAERS Safety Report 8640995 (Version 3)
Quarter: 2012Q4

REPORT INFORMATION
  Report Type: 
  Country: BE (occurrence: BE)
  Receive Date: 20120628
  Receipt Date: 20120829
  Transmission Date: 20130627
  Serious: Yes (Hospitalization)
  Sender: FDA-Public Use
  Company Number: PHHY2012BE043790

PATIENT
  Age: 75 Year
  Sex: Male

DRUGS (1)
  1. EXELON PATCH [Suspect]
     Indication: DEMENTIA ALZHEIMER^S TYPE
     Route: 062
     Dates: start: 20120517

REACTIONS (4)
  - Hernia [Recovered/Resolved]
  - Hyperhidrosis [Not Recovered/Not Resolved]
  - Umbilical hernia [None]
  - Inguinal hernia [None]
